FAERS Safety Report 16439467 (Version 11)
Quarter: 2020Q4

REPORT INFORMATION
  Report Type: Spontaneous
  Country: US (occurrence: US)
  Receive Date: 20190617
  Receipt Date: 20201104
  Transmission Date: 20210113
  Serious: Yes (Disabling)
  Sender: FDA-Public Use
  Company Number: US-PFIZER INC-2019157511

PATIENT
  Age: 50 Year
  Sex: Female

DRUGS (2)
  1. TOVIAZ [Suspect]
     Active Substance: FESOTERODINE FUMARATE
     Dosage: 4 MG, 1X/DAY
     Route: 048
  2. TOVIAZ [Suspect]
     Active Substance: FESOTERODINE FUMARATE
     Dosage: 4 MG, DAILY (EVERY DAY)
     Route: 048

REACTIONS (7)
  - Product prescribing issue [Unknown]
  - Fatigue [Unknown]
  - Fibromyalgia [Unknown]
  - Immune system disorder [Unknown]
  - Memory impairment [Unknown]
  - Migraine [Unknown]
  - Gait disturbance [Unknown]
